FAERS Safety Report 21124625 (Version 2)
Quarter: 2022Q3

REPORT INFORMATION
  Report Type: Spontaneous
  Country: GB (occurrence: GB)
  Receive Date: 20220725
  Receipt Date: 20220804
  Transmission Date: 20221027
  Serious: Yes (Death, Other)
  Sender: FDA-Public Use
  Company Number: GB-NOVOPROD-939812

PATIENT
  Age: 61 Year
  Sex: Male

DRUGS (1)
  1. INSULIN NOS [Suspect]
     Active Substance: INSULIN NOS
     Indication: Product used for unknown indication
     Dosage: UNK

REACTIONS (2)
  - Myocardial infarction [Fatal]
  - Diabetes mellitus inadequate control [Unknown]
